FAERS Safety Report 16544604 (Version 1)
Quarter: 2019Q3

REPORT INFORMATION
  Report Type: Spontaneous
  Country: DE (occurrence: DE)
  Receive Date: 20190709
  Receipt Date: 20190709
  Transmission Date: 20191004
  Serious: Yes (Life-Threatening, Hospitalization)
  Sender: FDA-Public Use
  Company Number: DE-TEVA-2019-DE-1074146

PATIENT
  Age: 51 Year
  Sex: Female
  Weight: 108 kg

DRUGS (9)
  1. ESPUMISAN [Concomitant]
     Active Substance: DIMETHICONE
     Dosage: 20 GTT, 1-1-1-0,
     Route: 048
  2. FUROSEMIDE. [Concomitant]
     Active Substance: FUROSEMIDE
     Dosage: 20 MG, 2-2-0-0,
     Route: 042
  3. GENTAMICIN. [Suspect]
     Active Substance: GENTAMICIN
     Dosage: 160 MG, SOLUTION FOR INJECTION / INFUSION
     Route: 042
  4. TILIDINE/NALOXONE [Concomitant]
     Active Substance: NALOXONE HYDROCHLORIDE\TILIDINE HYDROCHLORIDE
     Dosage: 50|4 MG, 1-0-1-0,
     Route: 048
  5. JONOSTERIL PLASTIK 2000ML [Concomitant]
     Dosage: 6|4|0|0|0 MMOL/L, ?BER 24 H,
     Route: 042
  6. VANCOMYCIN [Suspect]
     Active Substance: VANCOMYCIN
     Dosage: 1 G, 1-0-1-0,
     Route: 042
  7. PANTOPRAZOL [Concomitant]
     Active Substance: PANTOPRAZOLE SODIUM
     Dosage: 40 MG, 1-0-0-0,
     Route: 048
  8. VIGANTOLETTEN 1000I.E. VITAMIN D3 [Concomitant]
     Dosage: 1000 IE, 1-0-0-0
     Route: 048
  9. GABAPENTIN. [Concomitant]
     Active Substance: GABAPENTIN
     Dosage: 100 MG, ALLE 2,
     Route: 048

REACTIONS (7)
  - Renal impairment [Unknown]
  - Systemic infection [Unknown]
  - Therapeutic drug monitoring analysis incorrectly performed [Unknown]
  - Anuria [Unknown]
  - General physical health deterioration [Unknown]
  - Bacterial test [Unknown]
  - Pathogen resistance [Unknown]
